FAERS Safety Report 15148280 (Version 5)
Quarter: 2020Q4

REPORT INFORMATION
  Report Type: Other
  Country: US (occurrence: US)
  Receive Date: 20180716
  Receipt Date: 20201025
  Transmission Date: 20210113
  Serious: Yes (Hospitalization, Other)
  Sender: FDA-Public Use
  Company Number: US-ROCHE-2152649

PATIENT
  Age: 61 Year
  Sex: Female
  Weight: 49.49 kg

DRUGS (9)
  1. HIZENTRA [Concomitant]
     Active Substance: HUMAN IMMUNOGLOBULIN G
     Route: 058
  2. VALIUM [Concomitant]
     Active Substance: DIAZEPAM
  3. OCREVUS [Suspect]
     Active Substance: OCRELIZUMAB
     Indication: RELAPSING MULTIPLE SCLEROSIS
     Dosage: DATE OF TREATMENT-  10/JUL/2017, 25/JUL/2017, 25/JAN/2018, 27/JUL/2018, 21/JAN/2019, 02/JUL/2019, 02
     Route: 042
     Dates: start: 2017
  4. BACLOFEN. [Concomitant]
     Active Substance: BACLOFEN
  5. ARMOUR THYROID [Concomitant]
     Active Substance: THYROID, PORCINE
  6. OCREVUS [Suspect]
     Active Substance: OCRELIZUMAB
     Route: 042
     Dates: start: 20170725
  7. OCREVUS [Suspect]
     Active Substance: OCRELIZUMAB
     Route: 042
     Dates: start: 2018
  8. VALIUM [Suspect]
     Active Substance: DIAZEPAM
     Indication: TREMOR
     Route: 065
  9. GABAPENTIN. [Concomitant]
     Active Substance: GABAPENTIN

REACTIONS (14)
  - Rhinorrhoea [Not Recovered/Not Resolved]
  - Intentional product misuse [Unknown]
  - Cough [Not Recovered/Not Resolved]
  - Nausea [Recovered/Resolved]
  - Blood potassium decreased [Unknown]
  - Impaired gastric emptying [Not Recovered/Not Resolved]
  - Blood pressure increased [Recovered/Resolved]
  - Pain [Not Recovered/Not Resolved]
  - Tricuspid valve incompetence [Unknown]
  - Neuralgia [Not Recovered/Not Resolved]
  - Drug ineffective [Unknown]
  - Bladder disorder [Not Recovered/Not Resolved]
  - Multiple sclerosis relapse [Unknown]
  - Off label use [Unknown]

NARRATIVE: CASE EVENT DATE: 2019
